FAERS Safety Report 6087871-0 (Version None)
Quarter: 2009Q1

REPORT INFORMATION
  Report Type: 
  Country: None (occurrence: None)
  Receive Date: 20090223
  Receipt Date: 20090218
  Transmission Date: 20090719
  Serious: No
  Sender: FDA-Public Use
  Company Number: US-B.I. PHARMACEUTICALS,INC./RIDGEFIELD-2009-BP-02050BP

PATIENT
  Age: 72 Year
  Sex: Male

DRUGS (2)
  1. AGGRENOX [Suspect]
     Indication: CEREBROVASCULAR ACCIDENT
     Route: 048
     Dates: start: 20090101
  2. AGGRENOX [Suspect]
     Route: 048
     Dates: start: 20070101, end: 20090101

REACTIONS (2)
  - BACK PAIN [None]
  - TOOTHACHE [None]
